FAERS Safety Report 10155498 (Version 1)
Quarter: 2014Q2

REPORT INFORMATION
  Report Type: Spontaneous
  Country: US (occurrence: US)
  Receive Date: 20140506
  Receipt Date: 20140506
  Transmission Date: 20141212
  Serious: Yes (Other)
  Sender: FDA-Public Use
  Company Number: US-ASTRAZENECA-2014SE29359

PATIENT
  Sex: Female

DRUGS (3)
  1. BRILINTA [Suspect]
     Dosage: 180 MG LOADING DOSE
     Route: 048
  2. BRILINTA [Suspect]
     Route: 048
  3. OTHER MEDICATIONS [Concomitant]

REACTIONS (2)
  - Anaphylactic reaction [Recovered/Resolved]
  - Dyspnoea [Recovered/Resolved]
